FAERS Safety Report 9340605 (Version 2)
Quarter: 2013Q3

REPORT INFORMATION
  Report Type: Spontaneous
  Country: JP (occurrence: JP)
  Receive Date: 20130610
  Receipt Date: 20130828
  Transmission Date: 20140515
  Serious: Yes (Other)
  Sender: FDA-Public Use
  Company Number: PHHY2013JP057993

PATIENT
  Age: 6 Year
  Sex: Female
  Weight: 16 kg

DRUGS (9)
  1. SANDIMMUN [Suspect]
     Indication: HISTIOCYTOSIS HAEMATOPHAGIC
     Dosage: 50 MG, DAILY
     Route: 041
     Dates: start: 20120802, end: 20120803
  2. SANDIMMUN [Suspect]
     Dosage: 60 MG, DAILY
     Route: 041
     Dates: start: 20120804, end: 20120807
  3. NEORAL [Suspect]
     Indication: HISTIOCYTOSIS HAEMATOPHAGIC
     Dosage: 100 MG, UNK
     Route: 048
     Dates: start: 20120731, end: 20120801
  4. DEXART [Concomitant]
     Indication: HISTIOCYTOSIS HAEMATOPHAGIC
     Dosage: 7.26 MG, UNK
     Route: 041
     Dates: start: 20120731
  5. LASTET [Concomitant]
     Indication: HISTIOCYTOSIS HAEMATOPHAGIC
     Dosage: 110 MG, UNK
     Route: 041
     Dates: start: 20120731, end: 20120911
  6. RECOMODULIN [Concomitant]
     Indication: DISSEMINATED INTRAVASCULAR COAGULATION
     Dosage: 6400 IU, UNK
     Route: 041
     Dates: start: 20120731, end: 20120806
  7. MAXIPIME [Concomitant]
     Indication: INFECTION PROPHYLAXIS
     Dosage: 1650 MG, UNK
     Route: 041
     Dates: start: 20120803, end: 20120813
  8. FUNGUARD [Concomitant]
     Indication: INFECTION PROPHYLAXIS
     Dosage: 35 MG, UNK
     Route: 041
     Dates: start: 20120803, end: 20120827
  9. GASTER [Concomitant]
     Indication: PROPHYLAXIS AGAINST GASTROINTESTINAL ULCER
     Dosage: 20 MG, UNK
     Route: 041
     Dates: start: 20120802, end: 20120813

REACTIONS (4)
  - Posterior reversible encephalopathy syndrome [Recovering/Resolving]
  - Grand mal convulsion [Recovering/Resolving]
  - Visual acuity reduced [Unknown]
  - Blindness cortical [Unknown]
